FAERS Safety Report 25895126 (Version 2)
Quarter: 2025Q4

REPORT INFORMATION
  Report Type: Report from Study
  Country: US (occurrence: US)
  Receive Date: 20251008
  Receipt Date: 20251201
  Transmission Date: 20260118
  Serious: No
  Sender: IPSEN BIOPHARMACEUTICALS, INC.
  Company Number: US-IPSEN Group, Research and Development-2025-24696

PATIENT
  Age: 37 Year
  Sex: Male

DRUGS (1)
  1. BYLVAY [Suspect]
     Active Substance: ODEVIXIBAT
     Indication: Progressive familial intrahepatic cholestasis
     Dosage: TAKE TWO 1200 MCG ORAL CAPSULES BY MOUTH ONCE DAILY WITH A MEAL.
     Route: 048
     Dates: start: 20250520

REACTIONS (3)
  - Blood bilirubin increased [Unknown]
  - Adverse event [Unknown]
  - Product use issue [Unknown]
